FAERS Safety Report 22617583 (Version 1)
Quarter: 2023Q2

REPORT INFORMATION
  Report Type: Spontaneous
  Country: US (occurrence: US)
  Receive Date: 20230620
  Receipt Date: 20230620
  Transmission Date: 20230722
  Serious: No
  Sender: FDA-Public Use
  Company Number: US-PFM-2022-05231

PATIENT
  Sex: Female
  Weight: 15.896 kg

DRUGS (2)
  1. HEMANGEOL [Suspect]
     Active Substance: PROPRANOLOL HYDROCHLORIDE
     Indication: Haemangioma
     Dosage: 5.4 ML, BID (2/DAY)
     Route: 048
  2. HEMANGEOL [Suspect]
     Active Substance: PROPRANOLOL HYDROCHLORIDE
     Dosage: 6.4 ML, BID (2/DAY)
     Route: 048

REACTIONS (9)
  - Petechiae [Recovering/Resolving]
  - Feeding disorder [Recovering/Resolving]
  - Pyrexia [Not Recovered/Not Resolved]
  - Ear infection [Recovering/Resolving]
  - Illness [Unknown]
  - Diarrhoea [Unknown]
  - Decreased appetite [Unknown]
  - Product administered to patient of inappropriate age [Unknown]
  - Off label use [Unknown]
